FAERS Safety Report 23035406 (Version 3)
Quarter: 2023Q4

REPORT INFORMATION
  Report Type: Spontaneous
  Country: CY (occurrence: CY)
  Receive Date: 20231005
  Receipt Date: 20231129
  Transmission Date: 20240109
  Serious: Yes (Hospitalization, Disabling)
  Sender: FDA-Public Use
  Company Number: CY-BAYER-2023A139044

PATIENT
  Age: 73 Year
  Sex: Male

DRUGS (1)
  1. XARELTO [Suspect]
     Active Substance: RIVAROXABAN
     Indication: Product used for unknown indication
     Dosage: 20 MG
     Route: 048

REACTIONS (4)
  - Ischaemic stroke [Recovering/Resolving]
  - Transient ischaemic attack [Recovering/Resolving]
  - Atrial thrombosis [Recovering/Resolving]
  - Speech disorder [Not Recovered/Not Resolved]
